FAERS Safety Report 10196894 (Version 1)
Quarter: 2014Q2

REPORT INFORMATION
  Report Type: Spontaneous
  Country: US (occurrence: US)
  Receive Date: 20140527
  Receipt Date: 20140527
  Transmission Date: 20141212
  Serious: No
  Sender: FDA-Public Use
  Company Number: US-009507513-1405USA012177

PATIENT
  Age: 6 Year
  Sex: Male

DRUGS (2)
  1. CLARITIN [Suspect]
     Indication: SEASONAL ALLERGY
     Dosage: 20 MG TOTAL DOSE
     Route: 048
     Dates: start: 20140520
  2. CLARITIN [Suspect]
     Dosage: 1 TABLET (10 MG) EVERY 24HOURS AS NEEDED
     Route: 048
     Dates: start: 2013

REACTIONS (2)
  - Accidental overdose [Unknown]
  - No adverse event [Unknown]
